FAERS Safety Report 6445852-9 (Version None)
Quarter: 2009Q4

REPORT INFORMATION
  Report Type: 
  Country: None (occurrence: None)
  Receive Date: 20091119
  Receipt Date: 20091112
  Transmission Date: 20100525
  Serious: Yes (Other)
  Sender: FDA-Public Use
  Company Number: US-BIOGENIDEC-2009BI037029

PATIENT
  Age: 41 Year
  Sex: Female

DRUGS (3)
  1. AVONEX [Suspect]
     Indication: MULTIPLE SCLEROSIS
     Route: 030
     Dates: start: 19960101, end: 20030801
  2. AVONEX [Suspect]
     Route: 030
     Dates: start: 20030801, end: 20031101
  3. AVONEX [Suspect]
     Route: 030
     Dates: start: 20050101

REACTIONS (4)
  - PLACENTA PRAEVIA [None]
  - PYREXIA [None]
  - UTERINE ENLARGEMENT [None]
  - VOMITING [None]
